FAERS Safety Report 15259651 (Version 2)
Quarter: 2018Q3

REPORT INFORMATION
  Report Type: Spontaneous
  Country: CA (occurrence: CA)
  Receive Date: 20180809
  Receipt Date: 20180829
  Transmission Date: 20181010
  Serious: Yes (Other)
  Sender: FDA-Public Use
  Company Number: CA-PFIZER INC-2018315351

PATIENT
  Age: 34 Year
  Sex: Female

DRUGS (4)
  1. ATENOLOL. [Concomitant]
     Active Substance: ATENOLOL
     Dosage: 25 MG, DAILY
  2. HYDROCORTISONE. [Suspect]
     Active Substance: HYDROCORTISONE
     Dosage: 10 MG,(10 MG AM, 10 MG PM) 2X/DAY
  3. SYNTHROID [Concomitant]
     Active Substance: LEVOTHYROXINE SODIUM
     Dosage: 50 UG, DAILY
  4. ESTROGENS CONJUGATED [Suspect]
     Active Substance: ESTROGENS, CONJUGATED
     Dosage: UNK
     Route: 062

REACTIONS (5)
  - Pituitary infarction [Unknown]
  - Depressed mood [Unknown]
  - Hypopituitarism [Not Recovered/Not Resolved]
  - Weight loss poor [Unknown]
  - Growth hormone deficiency [Not Recovered/Not Resolved]

NARRATIVE: CASE EVENT DATE: 2012
